FAERS Safety Report 16049401 (Version 2)
Quarter: 2019Q2

REPORT INFORMATION
  Report Type: Spontaneous
  Country: US (occurrence: US)
  Receive Date: 20190307
  Receipt Date: 20190416
  Transmission Date: 20190711
  Serious: No
  Sender: FDA-Public Use
  Company Number: US-PFIZER INC-2019000108

PATIENT
  Age: 57 Year
  Sex: Female

DRUGS (6)
  1. DOXIL [Concomitant]
     Active Substance: DOXORUBICIN HYDROCHLORIDE
     Indication: CHEMOTHERAPY
     Dosage: UNK
  2. ADRIAMYCIN [Concomitant]
     Active Substance: DOXORUBICIN HYDROCHLORIDE
     Indication: CHEMOTHERAPY
     Dosage: UNK
  3. CYTOXAN [Concomitant]
     Active Substance: CYCLOPHOSPHAMIDE
     Indication: CHEMOTHERAPY
     Dosage: UNK
  4. NEOSAR [Concomitant]
     Active Substance: CYCLOPHOSPHAMIDE
     Indication: CHEMOTHERAPY
     Dosage: UNK
  5. DOCETAXEL. [Suspect]
     Active Substance: DOCETAXEL
     Indication: BREAST CANCER FEMALE
     Dosage: 80 MG, CYCLIC (04 CYCLES EVERY 03 WEEKS)
     Dates: start: 20120716, end: 20120917
  6. TAXOTERE [Suspect]
     Active Substance: DOCETAXEL
     Indication: BREAST CANCER FEMALE
     Dosage: 80 MG, CYCLIC (04 CYCLES EVERY 03 WEEKS)
     Dates: start: 20120716, end: 20120917

REACTIONS (4)
  - Hair colour changes [Not Recovered/Not Resolved]
  - Hair disorder [Not Recovered/Not Resolved]
  - Hair texture abnormal [Not Recovered/Not Resolved]
  - Alopecia [Not Recovered/Not Resolved]

NARRATIVE: CASE EVENT DATE: 20120801
